FAERS Safety Report 17510647 (Version 1)
Quarter: 2020Q1

REPORT INFORMATION
  Report Type: Spontaneous
  Country: NG (occurrence: NG)
  Receive Date: 20200306
  Receipt Date: 20200306
  Transmission Date: 20200409
  Serious: Yes (Hospitalization, Disabling, Other)
  Sender: FDA-Public Use
  Company Number: NG-AMGEN-NGASP2020036359

PATIENT
  Age: 54 Year
  Sex: Female

DRUGS (4)
  1. FILGRASTIM [Suspect]
     Active Substance: FILGRASTIM
     Indication: PRODUCT USED FOR UNKNOWN INDICATION
     Dosage: 300 MICROGRAM, AS NECESSARY (72 HOURLY PER WEEK PRN)
     Route: 065
  2. DARBEPOETIN ALFA [Suspect]
     Active Substance: DARBEPOETIN ALFA
     Indication: ANAEMIA
     Dosage: 4000 INTERNATIONAL UNIT, 2 TIMES/WK
     Route: 065
  3. ZOLEDRONIC ACID [Concomitant]
     Active Substance: ZOLEDRONIC ACID
     Indication: PLASMA CELL MYELOMA
     Dosage: 4 MILLIGRAM IN 100 ML 0.9 % NACL
     Route: 041
  4. DF118 [Concomitant]
     Indication: PLASMA CELL MYELOMA
     Dosage: 1 DOSAGE FORM, Q8H
     Route: 048

REACTIONS (3)
  - Spinal compression fracture [Unknown]
  - Plasma cell myeloma recurrent [Unknown]
  - Iron overload [Unknown]

NARRATIVE: CASE EVENT DATE: 2016
